FAERS Safety Report 25211823 (Version 1)
Quarter: 2025Q2

REPORT INFORMATION
  Report Type: Spontaneous
  Country: AU (occurrence: AU)
  Receive Date: 20250418
  Receipt Date: 20250418
  Transmission Date: 20250717
  Serious: Yes (Other)
  Sender: RANBAXY
  Company Number: AU-SUN PHARMACEUTICAL INDUSTRIES LTD-2025R1-504271

PATIENT
  Age: 48 Year
  Sex: Female

DRUGS (1)
  1. CIPROFLOXACIN [Suspect]
     Active Substance: CIPROFLOXACIN
     Indication: Meningitis pneumococcal
     Route: 042
     Dates: start: 201911, end: 202001

REACTIONS (15)
  - Autonomic neuropathy [Unknown]
  - Neuropathy peripheral [Unknown]
  - Psychiatric symptom [Unknown]
  - Sleep disorder [Unknown]
  - Taste disorder [Unknown]
  - Vestibular migraine [Unknown]
  - Parosmia [Not Recovered/Not Resolved]
  - Memory impairment [Unknown]
  - Immune system disorder [Not Recovered/Not Resolved]
  - Gait disturbance [Unknown]
  - Fibromyalgia [Unknown]
  - Condition aggravated [Unknown]
  - Cognitive disorder [Unknown]
  - Chronic fatigue syndrome [Unknown]
  - Persistent postural-perceptual dizziness [Unknown]

NARRATIVE: CASE EVENT DATE: 20191119
